FAERS Safety Report 8920313 (Version 1)
Quarter: 2012Q4

REPORT INFORMATION
  Report Type: 
  Country: FR (occurrence: FR)
  Receive Date: 20121122
  Receipt Date: 20121122
  Transmission Date: 20130627
  Serious: Yes (Hospitalization)
  Sender: FDA-Public Use
  Company Number: FR-JNJFOC-20121106410

PATIENT
  Sex: Male

DRUGS (8)
  1. RISPERDAL [Suspect]
     Indication: DELIRIUM
     Route: 048
     Dates: start: 20091201, end: 20120827
  2. EBIXA [Suspect]
     Indication: DEMENTIA ALZHEIMER^S TYPE
     Route: 048
     Dates: start: 20120908
  3. TAHOR [Concomitant]
     Route: 065
  4. METFORMINE [Concomitant]
     Route: 065
  5. GLICLAZIDE [Concomitant]
     Route: 065
  6. KARDEGIC [Concomitant]
     Route: 065
  7. MONO TILDIEM [Concomitant]
     Route: 065
  8. VITAMIN B12 [Concomitant]
     Route: 065

REACTIONS (4)
  - Pulmonary embolism [Recovered/Resolved]
  - General physical health deterioration [Unknown]
  - Weight decreased [Unknown]
  - Cognitive disorder [Unknown]
